FAERS Safety Report 17115502 (Version 1)
Quarter: 2019Q4

REPORT INFORMATION
  Report Type: Spontaneous
  Country: US (occurrence: US)
  Receive Date: 20191112
  Receipt Date: 20191112
  Transmission Date: 20200122
  Serious: Yes (Death)
  Sender: FDA-Public Use
  Company Number: None

PATIENT
  Age: 58 Year
  Sex: Male

DRUGS (17)
  1. CAPECITABINE 500MG TAB [Suspect]
     Active Substance: CAPECITABINE
     Indication: COLON CANCER
     Dosage: ?          OTHER FREQUENCY:QDX14 Q 21 DAYS;?
     Route: 048
     Dates: start: 20180119, end: 20190927
  2. BENZONATE [Concomitant]
     Active Substance: BENZONATATE
  3. LIDOCAINE. [Concomitant]
     Active Substance: LIDOCAINE
  4. OXYCODONE AND ACETAMINOPHEN [Concomitant]
     Active Substance: ACETAMINOPHEN\OXYCODONE HYDROCHLORIDE
  5. FOLIC ACID. [Concomitant]
     Active Substance: FOLIC ACID
  6. LEVOTHYROXIN [Concomitant]
     Active Substance: LEVOTHYROXINE
  7. OMEPRAZOLE. [Concomitant]
     Active Substance: OMEPRAZOLE
  8. LITHIUM CARB [Concomitant]
     Active Substance: LITHIUM CARBONATE
  9. PREDNISONE. [Concomitant]
     Active Substance: PREDNISONE
  10. TRUVADA [Concomitant]
     Active Substance: EMTRICITABINE\TENOFOVIR DISOPROXIL FUMARATE
  11. ESCITALOPRAM [Concomitant]
     Active Substance: ESCITALOPRAM OXALATE
  12. DEXAMETHASON [Concomitant]
     Active Substance: DEXAMETHASONE
  13. HYD POL/CPM [Concomitant]
  14. MEGESTROL AC [Concomitant]
  15. ALPRAZOLAM. [Concomitant]
     Active Substance: ALPRAZOLAM
  16. CLONAZEPAM. [Concomitant]
     Active Substance: CLONAZEPAM
  17. PROPRANOLOL [Concomitant]
     Active Substance: PROPRANOLOL HYDROCHLORIDE

REACTIONS (1)
  - Death [None]
